FAERS Safety Report 24030275 (Version 1)
Quarter: 2024Q2

REPORT INFORMATION
  Report Type: Report from Study
  Country: US (occurrence: US)
  Receive Date: 20240628
  Receipt Date: 20240628
  Transmission Date: 20240716
  Serious: Yes (Death)
  Sender: FDA-Public Use
  Company Number: US-JNJFOC-20240665616

PATIENT

DRUGS (13)
  1. REMICADE [Suspect]
     Active Substance: INFLIXIMAB
     Indication: Skin disorder
     Route: 041
  2. STELARA [Suspect]
     Active Substance: USTEKINUMAB
     Indication: Skin disorder
     Route: 058
  3. TREMFYA [Suspect]
     Active Substance: GUSELKUMAB
     Indication: Skin disorder
     Route: 065
  4. TREMFYA [Suspect]
     Active Substance: GUSELKUMAB
  5. TREMFYA [Suspect]
     Active Substance: GUSELKUMAB
  6. HUMIRA [Suspect]
     Active Substance: ADALIMUMAB
     Indication: Skin disorder
     Route: 065
  7. SILIQ [Suspect]
     Active Substance: BRODALUMAB
     Indication: Skin disorder
     Route: 065
  8. CIMZIA [Suspect]
     Active Substance: CERTOLIZUMAB PEGOL
     Indication: Skin disorder
     Route: 065
  9. DUPIXENT [Suspect]
     Active Substance: DUPILUMAB
     Indication: Skin disorder
     Route: 065
  10. ENBREL [Suspect]
     Active Substance: BENZYL ALCOHOL\ETANERCEPT
     Indication: Skin disorder
     Route: 065
  11. TALTZ [Suspect]
     Active Substance: IXEKIZUMAB
     Indication: Skin disorder
     Route: 065
  12. SKYRIZI [Suspect]
     Active Substance: RISANKIZUMAB-RZAA
     Indication: Skin disorder
     Route: 065
  13. COSENTYX [Suspect]
     Active Substance: SECUKINUMAB
     Indication: Skin disorder
     Route: 065

REACTIONS (2)
  - Autoimmune haemolytic anaemia [Fatal]
  - Immune thrombocytopenia [Fatal]
